FAERS Safety Report 6964014-X (Version None)
Quarter: 2010Q3

REPORT INFORMATION
  Report Type: 
  Country: None (occurrence: None)
  Receive Date: 20100902
  Receipt Date: 20100902
  Transmission Date: 20110219
  Serious: No
  Sender: FDA-Public Use
  Company Number: None

PATIENT
  Age: 47 Year
  Sex: Female

DRUGS (2)
  1. SALSALATE [Suspect]
     Indication: ARTHRITIS
     Dosage: 4 TABS DAILY DAILY PO
     Route: 048
     Dates: start: 20100610, end: 20100831
  2. SALSALATE [Suspect]
     Indication: AUTOIMMUNE DISORDER
     Dosage: 4 TABS DAILY DAILY PO
     Route: 048
     Dates: start: 20100610, end: 20100831

REACTIONS (1)
  - TINNITUS [None]
